FAERS Safety Report 8542113-9 (Version None)
Quarter: 2012Q3

REPORT INFORMATION
  Report Type: 
  Country: None (occurrence: None)
  Receive Date: 20120726
  Receipt Date: 20111020
  Transmission Date: 20120928
  Serious: No
  Sender: FDA-Public Use
  Company Number: US-ASTRAZENECA-2011SE63710

PATIENT
  Age: 49 Year
  Sex: Male

DRUGS (9)
  1. SEROQUEL [Suspect]
     Route: 048
  2. RISPERIDONE [Suspect]
     Route: 048
  3. SEROQUEL [Suspect]
     Route: 048
  4. RISPERIDONE [Suspect]
     Route: 048
  5. RISPERIDONE [Suspect]
     Route: 048
  6. CLONAZEPAM [Concomitant]
  7. ZOLOFT [Concomitant]
  8. HYDROCODONE BITARTRATE + ACETAMINOPHEN [Concomitant]
  9. SEROQUEL [Suspect]
     Route: 048

REACTIONS (15)
  - AGORAPHOBIA [None]
  - GENERALISED ANXIETY DISORDER [None]
  - HAEMORRHOIDS [None]
  - ABDOMINAL PAIN UPPER [None]
  - JOINT INJURY [None]
  - NEUROLOGICAL DECOMPENSATION [None]
  - CONTUSION [None]
  - FALL [None]
  - HERPES ZOSTER [None]
  - DECREASED APPETITE [None]
  - PSEUDODEMENTIA [None]
  - GASTRITIS [None]
  - MUSCULOSKELETAL PAIN [None]
  - DRUG THERAPY CHANGED [None]
  - HYPERTRIGLYCERIDAEMIA [None]
